FAERS Safety Report 5060415-8 (Version None)
Quarter: 2006Q3

REPORT INFORMATION
  Report Type: 
  Country: None (occurrence: None)
  Receive Date: 20060720
  Receipt Date: 20060710
  Transmission Date: 20061208
  Serious: Yes (Other)
  Sender: FDA-Public Use
  Company Number: US-2006-015647

PATIENT
  Age: 34 Year
  Sex: Female
  Weight: 85.7 kg

DRUGS (4)
  1. YASMIN [Suspect]
     Indication: ORAL CONTRACEPTION
     Dosage: 1 TAB(S), 1X/DAY, ORAL; SEE IMAGE
     Route: 048
     Dates: start: 20060301, end: 20060101
  2. YASMIN [Suspect]
     Indication: ORAL CONTRACEPTION
     Dosage: 1 TAB(S), 1X/DAY, ORAL; SEE IMAGE
     Route: 048
     Dates: start: 20040101, end: 20060201
  3. ATIVAN [Concomitant]
  4. SYNTHROID [Concomitant]

REACTIONS (9)
  - ANXIETY [None]
  - BLOOD SODIUM DECREASED [None]
  - DYSKINESIA [None]
  - DYSMENORRHOEA [None]
  - GASTROOESOPHAGEAL REFLUX DISEASE [None]
  - MOOD SWINGS [None]
  - NERVOUSNESS [None]
  - PANIC ATTACK [None]
  - TREMOR [None]
